FAERS Safety Report 6590476-6 (Version None)
Quarter: 2010Q1

REPORT INFORMATION
  Report Type: 
  Country: None (occurrence: None)
  Receive Date: 20100219
  Receipt Date: 20100212
  Transmission Date: 20100710
  Serious: Yes (Other)
  Sender: FDA-Public Use
  Company Number: FR-ROCHE-685114

PATIENT
  Sex: Male

DRUGS (8)
  1. PEGASYS [Suspect]
     Indication: DRUG USE FOR UNKNOWN INDICATION
     Dosage: FORM: INJECTION
     Route: 058
     Dates: start: 20091127
  2. COPEGUS [Suspect]
     Indication: DRUG USE FOR UNKNOWN INDICATION
     Route: 065
     Dates: start: 20091127
  3. TRUVADA [Concomitant]
     Dosage: 1 DAILY
  4. VIRAMUNE [Concomitant]
     Dosage: 2 DAILY
  5. BISOPROLOL FUMARATE [Concomitant]
     Dosage: DRUG REPORTED: DETENSIEL 10MG; .5 DAILY
  6. ATURGYL [Concomitant]
     Dosage: IF NECESSARY
  7. STILNOX [Concomitant]
     Dosage: DRUG REPORTED: STILNOX 10MG; 1 IN THE EVENING
  8. KEPPRA [Concomitant]
     Dosage: DRUG REPORTED: KEPPRA 500MG; 3 IN THE MORNING AND IN THE EVENING

REACTIONS (1)
  - TINNITUS [None]
